FAERS Safety Report 8834819 (Version 2)
Quarter: 2012Q4

REPORT INFORMATION
  Report Type: Report from Study
  Country: AU (occurrence: AU)
  Receive Date: 20121010
  Receipt Date: 20121022
  Transmission Date: 20130627
  Serious: Yes (Life-Threatening, Hospitalization)
  Sender: FDA-Public Use
  Company Number: AU-GLAXOSMITHKLINE-B0777428A

PATIENT
  Age: 77 Year
  Sex: Male

DRUGS (10)
  1. DIGOXIN [Suspect]
     Indication: PRODUCT USED FOR UNKNOWN INDICATION
     Route: 065
  2. BLINDED TRIAL MEDICATION [Suspect]
     Indication: TYPE 2 DIABETES MELLITUS
     Route: 065
     Dates: start: 20101201, end: 20111210
  3. METFORMIN HCL [Suspect]
     Indication: TYPE 2 DIABETES MELLITUS
     Dosage: 500MG Unknown
     Route: 065
  4. CARVEDILOL [Suspect]
     Indication: PRODUCT USED FOR UNKNOWN INDICATION
     Route: 065
  5. STATINS [Concomitant]
  6. BETA-BLOCKERS [Concomitant]
  7. ANTICOAGULANTS [Concomitant]
     Route: 048
  8. ALDOSTERONE ANTAGONIST [Concomitant]
  9. DIURETICS [Concomitant]
  10. TUMOR NECROSIS FACTOR NOS [Concomitant]

REACTIONS (3)
  - Gastrointestinal haemorrhage [Recovered/Resolved]
  - Sick sinus syndrome [Recovered/Resolved]
  - Gastrointestinal haemorrhage [Recovered/Resolved with Sequelae]
